FAERS Safety Report 16529436 (Version 2)
Quarter: 2019Q3

REPORT INFORMATION
  Report Type: Spontaneous
  Country: NL (occurrence: NL)
  Receive Date: 20190704
  Receipt Date: 20190718
  Transmission Date: 20191004
  Serious: Yes (Hospitalization, Other)
  Sender: FDA-Public Use
  Company Number: NL-ASTELLAS-2019US027261

PATIENT
  Age: 73 Year
  Sex: Male

DRUGS (3)
  1. ENZALUTAMIDE [Suspect]
     Active Substance: ENZALUTAMIDE
     Indication: HORMONE-REFRACTORY PROSTATE CANCER
     Route: 065
  2. FENTANYL. [Interacting]
     Active Substance: FENTANYL
     Indication: ANALGESIC THERAPY
     Dosage: 1DF, EVERY OTHER 3 DAY 25 MICROGRAM PER HOUR
     Route: 003
  3. FENTANYL. [Interacting]
     Active Substance: FENTANYL
     Dosage: 1 DF PER THREE DAYS, EVERY OTHER 3 DAY 50 MICROGRAM PER HOUR
     Route: 003

REACTIONS (3)
  - Spinal pain [Recovered/Resolved]
  - Drug interaction [Unknown]
  - Malignant neoplasm progression [Unknown]
